FAERS Safety Report 9070388 (Version 1)
Quarter: 2013Q1

REPORT INFORMATION
  Report Type: Spontaneous
  Country: US (occurrence: US)
  Receive Date: 20130215
  Receipt Date: 20130215
  Transmission Date: 20140127
  Serious: No
  Sender: FDA-Public Use
  Company Number: US-BAYER-2013-019620

PATIENT
  Age: 15 Year
  Sex: Female
  Weight: 52 kg

DRUGS (7)
  1. ALEVE CAPLET/TABLET,MIDOL EXTENDED RELIEF CAPLET [Suspect]
     Dosage: 2 DF, PRN
     Route: 048
     Dates: start: 201301
  2. DEMEROL [Concomitant]
  3. GABAPENTIN [Concomitant]
  4. SUMATRIPTAN [Concomitant]
  5. NORTRIPTYLINE [Concomitant]
  6. VICODIN [Concomitant]
  7. EXCEDRIN MIGRAINE [Concomitant]

REACTIONS (1)
  - Drug ineffective [None]
